FAERS Safety Report 11273703 (Version 1)
Quarter: 2015Q3

REPORT INFORMATION
  Report Type: Report from Study
  Country: DE (occurrence: DE)
  Receive Date: 20150715
  Receipt Date: 20150715
  Transmission Date: 20151125
  Serious: Yes (Hospitalization)
  Sender: FDA-Public Use
  Company Number: DE-ASTRAZENECA-2015SE02540

PATIENT
  Age: 75 Year
  Sex: Male

DRUGS (7)
  1. EUTHYROX [Concomitant]
     Active Substance: LEVOTHYROXINE SODIUM
     Route: 065
  2. ASA [Suspect]
     Active Substance: ASPIRIN
     Indication: ACUTE CORONARY SYNDROME
     Dosage: (NON AZ PRODUCT)
     Route: 048
     Dates: start: 20140805
  3. CAVEDILOL [Concomitant]
     Active Substance: CARVEDILOL
     Route: 065
  4. TICAGRELOR [Suspect]
     Active Substance: TICAGRELOR
     Indication: ACUTE CORONARY SYNDROME
     Dosage: 180 MG, DAILY
     Route: 048
     Dates: start: 20140805, end: 20140929
  5. NORVASC [Concomitant]
     Active Substance: AMLODIPINE BESYLATE
     Route: 065
  6. APROVEL [Concomitant]
     Active Substance: IRBESARTAN
     Route: 065
  7. ISOKET [Concomitant]
     Active Substance: ISOSORBIDE DINITRATE
     Route: 065

REACTIONS (2)
  - Dyspnoea exertional [Recovered/Resolved]
  - Dizziness exertional [Recovered/Resolved]

NARRATIVE: CASE EVENT DATE: 20140828
